FAERS Safety Report 11424217 (Version 2)
Quarter: 2016Q2

REPORT INFORMATION
  Report Type: Spontaneous
  Country: US (occurrence: US)
  Receive Date: 20150827
  Receipt Date: 20160512
  Transmission Date: 20160815
  Serious: Yes (Hospitalization)
  Sender: FDA-Public Use
  Company Number: US-UCBSA-2015027148

PATIENT
  Age: 55 Year
  Sex: Male

DRUGS (1)
  1. CIMZIA [Suspect]
     Active Substance: CERTOLIZUMAB PEGOL
     Indication: CROHN^S DISEASE
     Dosage: 200 MG, EV 2 WEEKS(QOW) (EXPIRATION DATE: AUG-2017)
     Dates: start: 20090112, end: 201508

REACTIONS (1)
  - Rocky mountain spotted fever [Not Recovered/Not Resolved]

NARRATIVE: CASE EVENT DATE: 20150816
